FAERS Safety Report 4743717-1 (Version None)
Quarter: 2005Q3

REPORT INFORMATION
  Report Type: 
  Country: None (occurrence: None)
  Receive Date: 20050812
  Receipt Date: 20050609
  Transmission Date: 20060218
  Serious: Yes (Life-Threatening, Hospitalization, Other)
  Sender: FDA-Public Use
  Company Number: US-GLAXOSMITHKLINE-A0562047A

PATIENT
  Age: 45 Year
  Sex: Female
  Weight: 83.2 kg

DRUGS (3)
  1. COMBIVIR [Suspect]
     Indication: HIV INFECTION
     Route: 048
     Dates: start: 20050428
  2. TRIZIVIR [Suspect]
     Indication: HIV INFECTION
     Dates: start: 20050331
  3. VIRAMUNE [Suspect]

REACTIONS (7)
  - AMNESIA [None]
  - CONVULSION [None]
  - DIZZINESS [None]
  - HYPOGLYCAEMIA [None]
  - INCONTINENCE [None]
  - LOSS OF CONSCIOUSNESS [None]
  - PALPITATIONS [None]
